FAERS Safety Report 12472562 (Version 1)
Quarter: 2016Q2

REPORT INFORMATION
  Report Type: Spontaneous
  Country: FR (occurrence: FR)
  Receive Date: 20160616
  Receipt Date: 20160616
  Transmission Date: 20160815
  Serious: Yes (Hospitalization, Other)
  Sender: FDA-Public Use
  Company Number: FR-UCBSA-2016021981

PATIENT
  Age: 6 Day
  Sex: Male
  Weight: 5 kg

DRUGS (5)
  1. ASPEGIC [Suspect]
     Active Substance: ASPIRIN DL-LYSINE
     Dosage: UNK
  2. ERGOCALCIFEROL. [Concomitant]
     Active Substance: ERGOCALCIFEROL
     Indication: PRODUCT USED FOR UNKNOWN INDICATION
     Dosage: 0.2 ML, ONCE DAILY (QD), 5000 IU/ML
     Route: 048
     Dates: start: 201602
  3. KEPPRA [Suspect]
     Active Substance: LEVETIRACETAM
     Dosage: UNK
  4. ASPEGIC [Suspect]
     Active Substance: ASPIRIN DL-LYSINE
     Indication: PRODUCT USED FOR UNKNOWN INDICATION
     Dosage: 10 MG, ONCE DAILY (QD)
     Route: 048
     Dates: start: 20160209, end: 2016
  5. KEPPRA [Suspect]
     Active Substance: LEVETIRACETAM
     Indication: SEIZURE
     Dosage: 30 MG, 2X/DAY (BID)
     Route: 048
     Dates: start: 20160208, end: 201605

REACTIONS (7)
  - Mouth haemorrhage [Unknown]
  - Off label use [Unknown]
  - Malaise [Unknown]
  - Normochromic normocytic anaemia [Recovered/Resolved]
  - Obstructive airways disorder [Unknown]
  - Hypotonia [Unknown]
  - Respiratory arrest [Unknown]

NARRATIVE: CASE EVENT DATE: 20160208
